FAERS Safety Report 12684849 (Version 2)
Quarter: 2017Q2

REPORT INFORMATION
  Report Type: Spontaneous
  Country: FR (occurrence: FR)
  Receive Date: 20160825
  Receipt Date: 20170522
  Transmission Date: 20170830
  Serious: Yes (Hospitalization, Other)
  Sender: FDA-Public Use
  Company Number: FR-GLAXOSMITHKLINE-FR2016GSK121710

PATIENT
  Age: 57 Year
  Sex: Male
  Weight: 64 kg

DRUGS (8)
  1. INEXIUM [Concomitant]
     Active Substance: ESOMEPRAZOLE
     Dosage: 20 MG, QD
     Route: 048
  2. ISENTRESS [Concomitant]
     Active Substance: RALTEGRAVIR POTASSIUM
     Indication: HIV INFECTION CDC CATEGORY A
     Dosage: 400 MG: 1 DF ON EVEN DAY
     Route: 048
  3. EPIVIR [Suspect]
     Active Substance: LAMIVUDINE
     Indication: HIV INFECTION CDC CATEGORY A
     Dosage: 150 MG, QD
     Route: 048
  4. DUPHALAC [Concomitant]
     Active Substance: LACTULOSE
     Dosage: 1 DF, TID
     Route: 048
  5. UVEDOSE [Concomitant]
     Active Substance: CHOLECALCIFEROL
     Dosage: 1 UNK, EVERY 15 DAYS
     Route: 048
  6. PROPANOLOL [Concomitant]
     Active Substance: PROPRANOLOL HYDROCHLORIDE
     Dosage: 40 MG, QD  IN THE MORNING
     Route: 048
  7. VIDEX [Suspect]
     Active Substance: DIDANOSINE
     Indication: HIV INFECTION CDC CATEGORY A
     Dosage: 400 MG, QD
     Route: 048
  8. WELLVONE [Concomitant]
     Active Substance: ATOVAQUONE
     Dosage: 1 DF IN THE MORNING AND 1 DF IN THE EVENING
     Route: 048

REACTIONS (6)
  - Nausea [Unknown]
  - Muscle spasms [Unknown]
  - Hyperkalaemia [Recovered/Resolved]
  - Decreased appetite [Unknown]
  - Asthenia [Unknown]
  - Lactic acidosis [Unknown]

NARRATIVE: CASE EVENT DATE: 201601
